FAERS Safety Report 8588563-6 (Version None)
Quarter: 2012Q3

REPORT INFORMATION
  Report Type: 
  Country: None (occurrence: None)
  Receive Date: 20120813
  Receipt Date: 20120731
  Transmission Date: 20120928
  Serious: Yes (Hospitalization)
  Sender: FDA-Public Use
  Company Number: FR-NOVOPROD-357381

PATIENT
  Age: 73 Year
  Sex: Female

DRUGS (9)
  1. ASPEGIC 1000 [Concomitant]
  2. ZOLPIDEM TARTRATE [Suspect]
     Indication: PRODUCT USED FOR UNKNOWN INDICATION
     Dosage: UNK
     Route: 065
     Dates: start: 20120630, end: 20120706
  3. GLUCOPHAGE [Concomitant]
  4. REPAGLINIDE [Suspect]
     Indication: TYPE 2 DIABETES MELLITUS
     Dosage: 12 MG, QD
     Route: 048
     Dates: start: 20120626, end: 20120706
  5. LEVOTHYROXINE SODIUM [Concomitant]
  6. ATORVASTATIN [Concomitant]
  7. IRBESARTAN AND HYDROCHLOROTHIAZIDE [Concomitant]
  8. AMLODIPINE BESYLATE [Concomitant]
  9. DOMPERIDONE [Suspect]
     Indication: PRODUCT USED FOR UNKNOWN INDICATION
     Dosage: UNK
     Route: 065
     Dates: start: 20120704, end: 20120706

REACTIONS (2)
  - RASH MACULO-PAPULAR [None]
  - RASH [None]
